FAERS Safety Report 4478468-4 (Version None)
Quarter: 2004Q4

REPORT INFORMATION
  Report Type: 
  Country: None (occurrence: None)
  Receive Date: 20041018
  Receipt Date: 20041018
  Transmission Date: 20050328
  Serious: Yes (Disabling)
  Sender: FDA-Public Use
  Company Number: None

PATIENT
  Age: 38 Year
  Sex: Female
  Weight: 85.7298 kg

DRUGS (4)
  1. MINOCYCLINE 75 MG CAPSULE GEN RANBAXY [Suspect]
     Indication: ACNE
     Dosage: 1 CAPSULE BID ORAL
     Route: 048
     Dates: start: 20040719, end: 20041014
  2. PROZAC [Concomitant]
  3. VERAPAMIL [Concomitant]
  4. ASPIRIN [Concomitant]

REACTIONS (4)
  - ARTHRITIS [None]
  - HYPOAESTHESIA [None]
  - NEUROPATHY PERIPHERAL [None]
  - PARAESTHESIA [None]
